FAERS Safety Report 18301774 (Version 2)
Quarter: 2020Q4

REPORT INFORMATION
  Report Type: Spontaneous
  Country: PE (occurrence: PE)
  Receive Date: 20200923
  Receipt Date: 20201001
  Transmission Date: 20210113
  Serious: No
  Sender: FDA-Public Use
  Company Number: PE-PFIZER INC-2020363110

PATIENT
  Age: 63 Year
  Sex: Female

DRUGS (5)
  1. LYRICA [Suspect]
     Active Substance: PREGABALIN
     Dosage: 12.5 MG, 1X/DAY (AT NIGHT)
     Route: 048
     Dates: start: 2020, end: 2020
  2. LYRICA [Suspect]
     Active Substance: PREGABALIN
     Indication: NECK PAIN
     Dosage: 25 MG, 2X/DAY (1 AT MORNING, 1 AT NIGHT) ALL DAYS
     Route: 048
     Dates: start: 202006, end: 2020
  3. LYRICA [Suspect]
     Active Substance: PREGABALIN
     Dosage: 25 MG, 2X/DAY (1 AT MORNING, 1 AT NIGHT) INTER-DAY
     Route: 048
     Dates: start: 2020, end: 2020
  4. LYRICA [Suspect]
     Active Substance: PREGABALIN
     Dosage: 12.5 MG, 1X/DAY (AT NIGHT) EVERY 2 DAYS
     Route: 048
     Dates: start: 2020, end: 2020
  5. LYRICA [Suspect]
     Active Substance: PREGABALIN
     Dosage: 12.5 MG, 1X/DAY (AT NIGHT) EVERY 3 DAYS
     Route: 048
     Dates: start: 2020, end: 20200901

REACTIONS (18)
  - Nervousness [Recovered/Resolved]
  - Depressed mood [Recovered/Resolved]
  - Insomnia [Recovered/Resolved]
  - Decreased appetite [Recovered/Resolved]
  - Crying [Recovered/Resolved]
  - Screaming [Recovered/Resolved]
  - Tinnitus [Recovering/Resolving]
  - Tremor [Recovering/Resolving]
  - Vulvovaginal burning sensation [Recovered/Resolved]
  - Anxiety [Recovered/Resolved]
  - Asthenia [Recovered/Resolved]
  - Headache [Recovering/Resolving]
  - Gastrointestinal disorder [Recovered/Resolved]
  - Product prescribing error [Recovered/Resolved]
  - Pain [Recovered/Resolved]
  - Burning sensation [Recovered/Resolved]
  - Nausea [Recovered/Resolved]
  - Gait inability [Recovered/Resolved]

NARRATIVE: CASE EVENT DATE: 2020
